FAERS Safety Report 17827621 (Version 3)
Quarter: 2023Q1

REPORT INFORMATION
  Report Type: Spontaneous
  Country: US (occurrence: US)
  Receive Date: 20200527
  Receipt Date: 20230314
  Transmission Date: 20230418
  Serious: Yes (Hospitalization, Other)
  Sender: FDA-Public Use
  Company Number: US-ELI_LILLY_AND_COMPANY-US202005007862

PATIENT
  Sex: Male

DRUGS (7)
  1. HUMALOG [Suspect]
     Active Substance: INSULIN LISPRO
     Indication: Type 1 diabetes mellitus
     Dosage: UNK UNK, UNKNOWN
     Route: 058
     Dates: start: 2003
  2. HUMALOG [Suspect]
     Active Substance: INSULIN LISPRO
     Dosage: UNK UNK, UNKNOWN
     Route: 058
     Dates: start: 2006
  3. HUMALOG [Suspect]
     Active Substance: INSULIN LISPRO
     Dosage: 273 U, DAILY
     Route: 058
  4. HUMULIN R [Suspect]
     Active Substance: INSULIN HUMAN
     Indication: Product used for unknown indication
     Dosage: 60 U, BID
     Route: 065
  5. HUMULIN R [Suspect]
     Active Substance: INSULIN HUMAN
     Dosage: 60 U, BID
     Route: 065
  6. PREDNISONE [Suspect]
     Active Substance: PREDNISONE
     Indication: Product used for unknown indication
     Dosage: 10 MG, UNKNOWN
     Route: 065
  7. PREDNISONE [Suspect]
     Active Substance: PREDNISONE
     Dosage: 5 MG, UNKNOWN
     Route: 065

REACTIONS (11)
  - Renal vasculitis [Unknown]
  - Renal failure [Unknown]
  - Renal failure [Recovered/Resolved]
  - Weight increased [Not Recovered/Not Resolved]
  - Overweight [Unknown]
  - Blood glucose increased [Unknown]
  - Subcutaneous drug absorption impaired [Unknown]
  - Insulin resistance [Unknown]
  - Weight decreased [Unknown]
  - Incorrect dose administered [Recovered/Resolved]
  - Wrong technique in product usage process [Not Recovered/Not Resolved]

NARRATIVE: CASE EVENT DATE: 20140101
